FAERS Safety Report 6058673-6 (Version None)
Quarter: 2009Q1

REPORT INFORMATION
  Report Type: 
  Country: None (occurrence: None)
  Receive Date: 20090130
  Receipt Date: 20090121
  Transmission Date: 20090719
  Serious: Yes (Death, Life-Threatening, Hospitalization, Disabling)
  Sender: FDA-Public Use
  Company Number: US-BAYER-200823235GPV

PATIENT
  Age: 76 Year
  Sex: Male

DRUGS (5)
  1. FLUDARA [Suspect]
     Indication: CHRONIC LYMPHOCYTIC LEUKAEMIA
     Route: 042
     Dates: start: 20080306, end: 20080310
  2. FLUDARA [Suspect]
     Route: 042
     Dates: start: 20080331, end: 20080404
  3. FLUDARA [Suspect]
     Route: 042
     Dates: start: 20080428, end: 20080502
  4. FLUDARA [Suspect]
     Route: 042
     Dates: start: 20080526, end: 20080530
  5. FLUDARA [Suspect]
     Route: 042
     Dates: start: 20080623, end: 20080627

REACTIONS (1)
  - CEREBROVASCULAR ACCIDENT [None]
